FAERS Safety Report 16724790 (Version 1)
Quarter: 2019Q3

REPORT INFORMATION
  Report Type: Spontaneous
  Country: US (occurrence: US)
  Receive Date: 20190821
  Receipt Date: 20190821
  Transmission Date: 20191005
  Serious: Yes (Disabling, Other)
  Sender: FDA-Public Use
  Company Number: US-NOVOPROD-679605

PATIENT
  Sex: Male

DRUGS (1)
  1. TRESIBA [Suspect]
     Active Substance: INSULIN DEGLUDEC
     Indication: PRODUCT USED FOR UNKNOWN INDICATION
     Dosage: 90 IU, BID
     Route: 058

REACTIONS (4)
  - Stress [Unknown]
  - Vascular graft [Unknown]
  - Cardiac operation [Unknown]
  - Anxiety [Unknown]

NARRATIVE: CASE EVENT DATE: 2014
